FAERS Safety Report 23171463 (Version 1)
Quarter: 2023Q4

REPORT INFORMATION
  Report Type: Spontaneous
  Country: IT (occurrence: IT)
  Receive Date: 20231110
  Receipt Date: 20231110
  Transmission Date: 20240110
  Serious: Yes (Other)
  Sender: FDA-Public Use
  Company Number: IT-BIOVITRUM-2023-IT-017918

PATIENT
  Age: 61 Year
  Sex: Female

DRUGS (1)
  1. AVATROMBOPAG [Suspect]
     Active Substance: AVATROMBOPAG
     Indication: Product used for unknown indication
     Dosage: 20MG/DAY

REACTIONS (3)
  - Platelet count increased [Unknown]
  - Pulmonary embolism [Unknown]
  - Platelet count abnormal [Unknown]

NARRATIVE: CASE EVENT DATE: 20230825
